FAERS Safety Report 7209650-0 (Version None)
Quarter: 2011Q1

REPORT INFORMATION
  Report Type: 
  Country: None (occurrence: None)
  Receive Date: 20110103
  Receipt Date: 20110103
  Transmission Date: 20110831
  Serious: Yes (Other)
  Sender: FDA-Public Use
  Company Number: None

PATIENT
  Age: 35 Year
  Sex: Female
  Weight: 104.3273 kg

DRUGS (1)
  1. OXYCONTIN [Suspect]
     Indication: PAIN MANAGEMENT
     Dosage: 80MG 8 HOURS PO
     Route: 048
     Dates: start: 20100917, end: 20101231

REACTIONS (5)
  - PAIN [None]
  - FEAR OF DISEASE [None]
  - PRODUCT FORMULATION ISSUE [None]
  - DRUG EFFECT DECREASED [None]
  - DYSPEPSIA [None]
